FAERS Safety Report 8170782-4 (Version None)
Quarter: 2012Q1

REPORT INFORMATION
  Report Type: 
  Country: None (occurrence: None)
  Receive Date: 20120228
  Receipt Date: 20120215
  Transmission Date: 20120608
  Serious: Yes (Other)
  Sender: FDA-Public Use
  Company Number: US-PFIZER INC-2012050920

PATIENT
  Age: 47 Year
  Sex: Female

DRUGS (1)
  1. MORPHINE [Suspect]
     Dosage: UNK
     Route: 065

REACTIONS (1)
  - HALLUCINATION [None]
